FAERS Safety Report 18159561 (Version 4)
Quarter: 2021Q1

REPORT INFORMATION
  Report Type: Report from Study
  Country: None (occurrence: US)
  Receive Date: 20200818
  Receipt Date: 20210330
  Transmission Date: 20210419
  Serious: Yes (Other)
  Sender: FDA-Public Use
  Company Number: US-ABBVIE-20P-163-3359344-00

PATIENT
  Sex: Female

DRUGS (8)
  1. IMBRUVICA [Suspect]
     Active Substance: IBRUTINIB
     Route: 048
     Dates: end: 202005
  2. IMBRUVICA [Suspect]
     Active Substance: IBRUTINIB
     Route: 048
  3. IMBRUVICA [Suspect]
     Active Substance: IBRUTINIB
     Route: 048
  4. IMBRUVICA [Suspect]
     Active Substance: IBRUTINIB
     Indication: CHRONIC LYMPHOCYTIC LEUKAEMIA
     Route: 048
     Dates: start: 20150821
  5. IMBRUVICA [Suspect]
     Active Substance: IBRUTINIB
     Route: 048
     Dates: start: 20150921
  6. IMBRUVICA [Suspect]
     Active Substance: IBRUTINIB
     Indication: CHRONIC LYMPHOCYTIC LEUKAEMIA
     Route: 048
     Dates: end: 201910
  7. COVID?19 VACCINE [Concomitant]
     Indication: COVID-19 IMMUNISATION
     Route: 030
  8. COVID?19 VACCINE [Concomitant]
     Route: 030

REACTIONS (20)
  - Dental care [Recovered/Resolved]
  - Peripheral coldness [Not Recovered/Not Resolved]
  - Urinary tract infection [Recovering/Resolving]
  - Blood creatinine increased [Unknown]
  - Hypoaesthesia [Not Recovered/Not Resolved]
  - Therapeutic procedure [Recovered/Resolved]
  - Burning sensation [Not Recovered/Not Resolved]
  - Abdominal discomfort [Unknown]
  - Constipation [Unknown]
  - Carpal tunnel syndrome [Recovering/Resolving]
  - Cataract [Unknown]
  - Urinary incontinence [Not Recovered/Not Resolved]
  - Blood iron decreased [Unknown]
  - Anger [Unknown]
  - Bladder prolapse [Not Recovered/Not Resolved]
  - Intervertebral disc disorder [Not Recovered/Not Resolved]
  - Dysphagia [Unknown]
  - Haemorrhage [Unknown]
  - Tooth infection [Not Recovered/Not Resolved]
  - Malaise [Not Recovered/Not Resolved]

NARRATIVE: CASE EVENT DATE: 2020
